FAERS Safety Report 19755569 (Version 1)
Quarter: 2021Q3

REPORT INFORMATION
  Report Type: Spontaneous
  Country: SE (occurrence: SE)
  Receive Date: 20210827
  Receipt Date: 20210827
  Transmission Date: 20211014
  Serious: Yes (Other)
  Sender: FDA-Public Use
  Company Number: SE-MYLANLABS-2021M1055237

PATIENT
  Age: 58 Year
  Sex: Female

DRUGS (3)
  1. BISOMYL [Suspect]
     Active Substance: BISOPROLOL FUMARATE
     Dosage: 1.25 MILLIGRAM
  2. BISOMYL [Suspect]
     Active Substance: BISOPROLOL FUMARATE
     Indication: CARDIAC VALVE DISEASE
     Dosage: 1.25 MILLIGRAM
  3. BISOMYL [Suspect]
     Active Substance: BISOPROLOL FUMARATE
     Dosage: ? TABLET
     Dates: start: 2021

REACTIONS (5)
  - Dyspnoea [Unknown]
  - Hypotension [Unknown]
  - Cardiac fibrillation [Recovered/Resolved]
  - Heart rate decreased [Unknown]
  - Feeling abnormal [Unknown]
